FAERS Safety Report 16736511 (Version 1)
Quarter: 2019Q3

REPORT INFORMATION
  Report Type: Report from Study
  Country: US (occurrence: US)
  Receive Date: 20190823
  Receipt Date: 20190823
  Transmission Date: 20191005
  Serious: Yes (Other)
  Sender: FDA-Public Use
  Company Number: US-JNJFOC-20190817738

PATIENT
  Sex: Female

DRUGS (1)
  1. ESKETAMINE [Suspect]
     Active Substance: ESKETAMINE
     Indication: DEPRESSION
     Dosage: START DATE OF APR-2019 PRESCRIPTION NUMBER: 50458-028-03

REACTIONS (5)
  - Autoscopy [Unknown]
  - Suicidal ideation [Unknown]
  - Hallucination, visual [Unknown]
  - Paralysis [Unknown]
  - Respiratory arrest [Recovered/Resolved]
